FAERS Safety Report 13664611 (Version 6)
Quarter: 2017Q4

REPORT INFORMATION
  Report Type: Spontaneous
  Country: US (occurrence: US)
  Receive Date: 20170619
  Receipt Date: 20171002
  Transmission Date: 20180320
  Serious: Yes (Other)
  Sender: FDA-Public Use
  Company Number: US-GLAXOSMITHKLINE-US2017093096

PATIENT
  Age: 60 Year
  Sex: Female
  Weight: 99.32 kg

DRUGS (19)
  1. BENLYSTA [Suspect]
     Active Substance: BELIMUMAB
     Indication: SYSTEMIC LUPUS ERYTHEMATOSUS
     Dosage: 10 MG/KG, SINGLE
     Route: 042
     Dates: start: 20170601, end: 20170601
  2. TYLENOL [Concomitant]
     Active Substance: ACETAMINOPHEN
  3. ADVAIR HFA [Concomitant]
     Active Substance: FLUTICASONE PROPIONATE\SALMETEROL XINAFOATE
  4. LISINOPRIL. [Concomitant]
     Active Substance: LISINOPRIL
  5. PLAQUENIL [Concomitant]
     Active Substance: HYDROXYCHLOROQUINE SULFATE
  6. GABAPENTIN. [Concomitant]
     Active Substance: GABAPENTIN
  7. ATORVASTATIN CALCIUM. [Concomitant]
     Active Substance: ATORVASTATIN CALCIUM
  8. DULOXETINE. [Concomitant]
     Active Substance: DULOXETINE
  9. ERGOCALCIFEROL. [Concomitant]
     Active Substance: ERGOCALCIFEROL
  10. PREDNISONE. [Concomitant]
     Active Substance: PREDNISONE
  11. RAYOS [Concomitant]
     Active Substance: PREDNISONE
  12. NUCYNTA [Concomitant]
     Active Substance: TAPENTADOL HYDROCHLORIDE
  13. OTEZLA [Concomitant]
     Active Substance: APREMILAST
  14. CLOBETASOL PROPIONATE. [Concomitant]
     Active Substance: CLOBETASOL PROPIONATE
  15. METFORMIN HYDROCHLORIDE. [Concomitant]
     Active Substance: METFORMIN HYDROCHLORIDE
  16. SOLU-MEDROL [Concomitant]
     Active Substance: METHYLPREDNISOLONE SODIUM SUCCINATE
  17. BENADRYL [Concomitant]
     Active Substance: DIPHENHYDRAMINE HYDROCHLORIDE
  18. NORMAL SALINE [Concomitant]
     Active Substance: SODIUM CHLORIDE
  19. TIGAN [Suspect]
     Active Substance: TRIMETHOBENZAMIDE HYDROCHLORIDE

REACTIONS (21)
  - Somnolence [Unknown]
  - Anxiety [Unknown]
  - Diabetes mellitus [Unknown]
  - Asthenia [Unknown]
  - Condition aggravated [Unknown]
  - Hyperglycaemia [Unknown]
  - Nausea [Unknown]
  - Hyperhidrosis [Unknown]
  - Malaise [Unknown]
  - Dizziness postural [Unknown]
  - Food intolerance [Unknown]
  - Headache [Recovered/Resolved]
  - Diarrhoea [Unknown]
  - Pyrexia [Unknown]
  - Product quality issue [Unknown]
  - Gait disturbance [Unknown]
  - Ill-defined disorder [Unknown]
  - Hypersensitivity [Not Recovered/Not Resolved]
  - Skin disorder [Unknown]
  - Vomiting [Unknown]
  - Dizziness [Unknown]

NARRATIVE: CASE EVENT DATE: 20170601
